FAERS Safety Report 7810232-8 (Version None)
Quarter: 2011Q4

REPORT INFORMATION
  Report Type: 
  Country: None (occurrence: None)
  Receive Date: 20111012
  Receipt Date: 20111006
  Transmission Date: 20120403
  Serious: Yes (Hospitalization)
  Sender: FDA-Public Use
  Company Number: JP-PFIZER INC-2011242619

PATIENT
  Age: 79 Year
  Sex: Male

DRUGS (5)
  1. CELECOXIB [Suspect]
     Dosage: 100 MG, 2X/DAY
     Route: 048
     Dates: start: 20110922, end: 20111004
  2. MYONAL [Suspect]
     Dosage: UNK
     Dates: end: 20111004
  3. FAMOTIDINE [Suspect]
     Dosage: 20 MG, 1X/DAY
     Route: 048
     Dates: end: 20111005
  4. TOUGHMAC E [Suspect]
     Dosage: UNK
  5. TIZANIDINE HCL [Suspect]

REACTIONS (1)
  - HYPOGLYCAEMIA [None]
